FAERS Safety Report 20634357 (Version 2)
Quarter: 2022Q2

REPORT INFORMATION
  Report Type: Report from Study
  Country: CZ (occurrence: CZ)
  Receive Date: 20220325
  Receipt Date: 20220406
  Transmission Date: 20220720
  Serious: Yes (Hospitalization, Other)
  Sender: FDA-Public Use
  Company Number: CZ-AUROBINDO-AUR-APL-2022-009427

PATIENT
  Age: 59 Year
  Sex: Female

DRUGS (5)
  1. HYDROCHLOROTHIAZIDE [Suspect]
     Active Substance: HYDROCHLOROTHIAZIDE
     Indication: Hypertension
     Dosage: 2.5 MILLIGRAM
     Route: 065
  2. ATORVASTATIN [Suspect]
     Active Substance: ATORVASTATIN
     Indication: Product used for unknown indication
     Dosage: 20 MILLIGRAM
     Route: 065
  3. TELMISARTAN [Suspect]
     Active Substance: TELMISARTAN
     Indication: Hypertension
     Dosage: 40 MILLIGRAM
     Route: 065
  4. WARFARIN [Suspect]
     Active Substance: WARFARIN
     Indication: Anticoagulant therapy
     Dosage: UNK
     Route: 048
  5. AMILORIDE [Suspect]
     Active Substance: AMILORIDE
     Indication: Hypertension
     Dosage: 25 MILLIGRAM
     Route: 065

REACTIONS (2)
  - International normalised ratio increased [Recovered/Resolved]
  - Spinal epidural haematoma [Recovered/Resolved]
